FAERS Safety Report 9205175 (Version 2)
Quarter: 2013Q2

REPORT INFORMATION
  Report Type: Spontaneous
  Country: US (occurrence: US)
  Receive Date: 20130402
  Receipt Date: 20130513
  Transmission Date: 20140414
  Serious: No
  Sender: FDA-Public Use
  Company Number: US-ASTRAZENECA-2013SE18657

PATIENT
  Age: 61 Year
  Sex: Female
  Weight: 93 kg

DRUGS (7)
  1. ATENOLOL [Suspect]
     Route: 065
  2. SYMBICORT [Suspect]
     Indication: CHRONIC OBSTRUCTIVE PULMONARY DISEASE
     Dosage: 160/4.5 MCG TWO PUFFS TWO TIMES A DAY
     Route: 055
     Dates: start: 2009, end: 2011
  3. SYMBICORT [Suspect]
     Indication: CHRONIC OBSTRUCTIVE PULMONARY DISEASE
     Dosage: 160/4.5 MCG TWO PUFFS TWO TIMES A DAY
     Route: 055
     Dates: start: 201302
  4. COUMADIN [Concomitant]
  5. SYNTHROID [Concomitant]
  6. LASIX [Concomitant]
  7. POTASSIUM [Concomitant]

REACTIONS (3)
  - Dyspnoea [Unknown]
  - Chronic obstructive pulmonary disease [Unknown]
  - Intentional drug misuse [Unknown]
